FAERS Safety Report 25014546 (Version 1)
Quarter: 2025Q1

REPORT INFORMATION
  Report Type: Spontaneous
  Country: US (occurrence: US)
  Receive Date: 20250226
  Receipt Date: 20250226
  Transmission Date: 20250408
  Serious: Yes (Other)
  Sender: NOVARTIS
  Company Number: US-SANDOZ-SDZ2025US011188

PATIENT
  Age: 76 Year
  Sex: Female

DRUGS (3)
  1. ZOMETA [Suspect]
     Active Substance: ZOLEDRONIC ACID
     Indication: Product used for unknown indication
     Route: 065
  2. LETROZOLE [Suspect]
     Active Substance: LETROZOLE
     Indication: Product used for unknown indication
     Route: 065
  3. IBRANCE [Suspect]
     Active Substance: PALBOCICLIB
     Indication: Product used for unknown indication
     Route: 065

REACTIONS (7)
  - Bone cancer metastatic [Unknown]
  - Anxiety [Unknown]
  - Blood potassium abnormal [Unknown]
  - Blood calcium abnormal [Unknown]
  - Haemoglobin decreased [Unknown]
  - Pain [Unknown]
  - Adverse reaction [Unknown]
